FAERS Safety Report 20002378 (Version 3)
Quarter: 2021Q4

REPORT INFORMATION
  Report Type: Spontaneous
  Country: TR (occurrence: TR)
  Receive Date: 20211027
  Receipt Date: 20211123
  Transmission Date: 20220303
  Serious: Yes (Hospitalization, Other)
  Sender: FDA-Public Use
  Company Number: TR-009507513-2110TUR006916

PATIENT
  Age: 17 Year
  Sex: Male

DRUGS (8)
  1. ROCURONIUM BROMIDE [Suspect]
     Active Substance: ROCURONIUM BROMIDE
     Dosage: 40 MG IV
     Route: 042
  2. BRIDION [Suspect]
     Active Substance: SUGAMMADEX
     Dosage: 100MG+100MG+200MG
  3. BRIDION [Suspect]
     Active Substance: SUGAMMADEX
     Dosage: 200MG+200MG
  4. CEFAZOLIN SODIUM [Concomitant]
     Active Substance: CEFAZOLIN SODIUM
     Dosage: 1000 MG IV
     Route: 042
  5. MIDAZOLAM HYDROCHLORIDE [Concomitant]
     Active Substance: MIDAZOLAM HYDROCHLORIDE
     Dosage: 2 MG IV
     Route: 042
  6. LIDOCAINE HYDROCHLORIDE [Concomitant]
     Active Substance: LIDOCAINE HYDROCHLORIDE
     Dosage: 60 MG IV
     Route: 042
  7. PROPOFOL [Concomitant]
     Active Substance: PROPOFOL
     Dosage: 160 MG IV
     Route: 042
  8. FENTANYL CITRATE [Concomitant]
     Active Substance: FENTANYL CITRATE
     Dosage: 75 MCG IV
     Route: 042

REACTIONS (2)
  - Muscular weakness [Recovered/Resolved]
  - Hypoventilation [Recovered/Resolved]
